FAERS Safety Report 6825126-4 (Version None)
Quarter: 2010Q3

REPORT INFORMATION
  Report Type: 
  Country: None (occurrence: None)
  Receive Date: 20100708
  Receipt Date: 20061207
  Transmission Date: 20110219
  Serious: No
  Sender: FDA-Public Use
  Company Number: US-PFIZER INC-2006152944

PATIENT
  Sex: Female

DRUGS (5)
  1. CHANTIX [Suspect]
     Indication: SMOKING CESSATION THERAPY
     Dates: start: 20061206
  2. VYTORIN [Concomitant]
  3. PAXIL [Concomitant]
  4. PREMPRO [Concomitant]
  5. IBUPROFEN [Concomitant]

REACTIONS (1)
  - HEADACHE [None]
